FAERS Safety Report 4462612-9 (Version None)
Quarter: 2004Q3

REPORT INFORMATION
  Report Type: 
  Country: None (occurrence: None)
  Receive Date: 20040928
  Receipt Date: 20040916
  Transmission Date: 20050211
  Serious: Yes (Hospitalization)
  Sender: FDA-Public Use
  Company Number: 200410261BFR

PATIENT
  Age: 65 Year
  Sex: Female

DRUGS (5)
  1. GLUCOR (ACARBOSE) [Suspect]
     Dosage: ORAL
     Route: 048
  2. CAPTOPRIL [Suspect]
     Dosage: ORAL
     Route: 048
  3. ACTRAPID (INSULIN HUMAN) [Suspect]
     Dosage: SUBCUTANEOUS
     Route: 058
  4. NOROXIN [Suspect]
     Dosage: BID, ORAL
     Route: 048
     Dates: end: 20040304
  5. CELEBREX [Suspect]
     Dosage: BID, ORAL
     Route: 048
     Dates: end: 20040311

REACTIONS (2)
  - PRURITUS [None]
  - RASH MACULAR [None]
